FAERS Safety Report 4706063-8 (Version None)
Quarter: 2005Q2

REPORT INFORMATION
  Report Type: 
  Country: None (occurrence: None)
  Receive Date: 20050627
  Receipt Date: 20041014
  Transmission Date: 20051028
  Serious: Yes (Hospitalization)
  Sender: FDA-Public Use
  Company Number: US-JNJFOC-20040401410

PATIENT
  Age: 41 Year
  Sex: Male
  Weight: 127.0072 kg

DRUGS (5)
  1. FENTANYL [Suspect]
     Indication: PAIN
     Dosage: 25 UG/HR, 1 IN 72 HOUR, TRANSDERMAL
     Route: 062
     Dates: start: 20031201, end: 20040318
  2. FENTANYL [Suspect]
     Indication: PAIN
     Dosage: 75 UG/HR, 1 IN 72 HOUR, TRANSDERMAL
     Route: 062
     Dates: start: 20040319
  3. NEURONTIN [Concomitant]
  4. VERAPAMIL [Concomitant]
  5. UNIVASC [Concomitant]

REACTIONS (11)
  - APPLICATION SITE DISCOLOURATION [None]
  - ASTHENIA [None]
  - COLD SWEAT [None]
  - DRUG TOXICITY [None]
  - DRUG WITHDRAWAL SYNDROME [None]
  - DYSPNOEA [None]
  - FATIGUE [None]
  - LETHARGY [None]
  - MUSCLE SPASMS [None]
  - PALLOR [None]
  - RASH [None]
